FAERS Safety Report 8389710-1 (Version None)
Quarter: 2012Q2

REPORT INFORMATION
  Report Type: 
  Country: None (occurrence: None)
  Receive Date: 20120523
  Receipt Date: 20120523
  Transmission Date: 20120825
  Serious: Yes (Life-Threatening, Hospitalization, Other)
  Sender: FDA-Public Use
  Company Number: None

PATIENT
  Age: 78 Year
  Sex: Male
  Weight: 63.5036 kg

DRUGS (1)
  1. VIIBRYD [Suspect]
     Indication: DEMENTIA
     Dosage: 20 MG 2 X DAY  MAR 12 TO 19 10MG 1XDAY MAR 20 TO 27 20MG 1 DAY

REACTIONS (6)
  - SOMNOLENCE [None]
  - SUICIDAL IDEATION [None]
  - DEPRESSION [None]
  - AGITATION [None]
  - SCREAMING [None]
  - NIGHTMARE [None]
